FAERS Safety Report 5639011-7 (Version None)
Quarter: 2008Q1

REPORT INFORMATION
  Report Type: 
  Country: None (occurrence: None)
  Receive Date: 20080226
  Receipt Date: 20080211
  Transmission Date: 20080703
  Serious: Yes (Other)
  Sender: FDA-Public Use
  Company Number: ES-RANBAXY-2008US-13258

PATIENT

DRUGS (2)
  1. TOPIRAMATE [Suspect]
     Indication: DEPRESSION
     Dosage: 200 MG, QD
     Route: 048
  2. SERTRALINE [Concomitant]
     Indication: DRUG USE FOR UNKNOWN INDICATION
     Dosage: UNK
     Route: 065

REACTIONS (2)
  - DEMENTIA [None]
  - MEMORY IMPAIRMENT [None]
